FAERS Safety Report 9079613 (Version 1)
Quarter: 2013Q1

REPORT INFORMATION
  Report Type: Report from Study
  Country: US (occurrence: US)
  Receive Date: 20130130
  Receipt Date: 20130130
  Transmission Date: 20140127
  Serious: No
  Sender: FDA-Public Use
  Company Number: US-ABBOTT-12P-163-0952891-00

PATIENT
  Age: 59 Year
  Sex: Female

DRUGS (5)
  1. HUMIRA 40 MG/0.8 ML PEN [Suspect]
     Indication: PSORIASIS
     Dates: start: 20120521, end: 20120709
  2. UNSPECIFIED INGREDIENTS [Suspect]
     Indication: PRODUCT USED FOR UNKNOWN INDICATION
  3. CYCLOSPORINE [Concomitant]
     Indication: PRODUCT USED FOR UNKNOWN INDICATION
     Dosage: 175MG DAILY = 75MG IN THE AM AND 100MG AT BEDTIME
     Route: 048
  4. TRIAMCINOLONE [Concomitant]
     Indication: ILL-DEFINED DISORDER
  5. SCALP CREME [Concomitant]
     Indication: PRODUCT USED FOR UNKNOWN INDICATION

REACTIONS (4)
  - Skin atrophy [Not Recovered/Not Resolved]
  - Psoriasis [None]
  - Pustular psoriasis [Not Recovered/Not Resolved]
  - Vascular injury [Not Recovered/Not Resolved]
